FAERS Safety Report 7438520-8 (Version None)
Quarter: 2011Q2

REPORT INFORMATION
  Report Type: 
  Country: None (occurrence: None)
  Receive Date: 20110426
  Receipt Date: 20110414
  Transmission Date: 20111010
  Serious: Yes (Other)
  Sender: FDA-Public Use
  Company Number: PHHY2010JP75165

PATIENT
  Sex: Male

DRUGS (5)
  1. ASPARA-CA [Concomitant]
     Dosage: 4 DF, UNK
     Route: 048
  2. TASIGNA [Suspect]
     Dosage: 400 MG, QD
     Route: 048
     Dates: start: 20100927, end: 20101026
  3. ZYLORIC [Concomitant]
     Dosage: 100 MG, UNK
     Route: 048
     Dates: start: 20080625
  4. NU-LOTAN [Concomitant]
     Dosage: 25 MG, UNK
     Route: 048
     Dates: start: 20080410
  5. TASIGNA [Suspect]
     Indication: CHRONIC MYELOID LEUKAEMIA
     Dosage: 800 MG, QD
     Route: 048
     Dates: start: 20100921, end: 20100926

REACTIONS (5)
  - C-REACTIVE PROTEIN INCREASED [None]
  - PYREXIA [None]
  - WHITE BLOOD CELL COUNT INCREASED [None]
  - ABDOMINAL PAIN UPPER [None]
  - EOSINOPHIL COUNT INCREASED [None]
